FAERS Safety Report 4426413-X (Version None)
Quarter: 2004Q3

REPORT INFORMATION
  Report Type: 
  Country: None (occurrence: None)
  Receive Date: 20040811
  Receipt Date: 20040802
  Transmission Date: 20050211
  Serious: Yes (Hospitalization)
  Sender: FDA-Public Use
  Company Number: 2004223672FR

PATIENT
  Age: 37 Year
  Sex: Male
  Weight: 84 kg

DRUGS (4)
  1. BREXIDOL [Suspect]
     Indication: JOINT DISLOCATION
     Dosage: ORAL
     Route: 048
     Dates: start: 20040407, end: 20040101
  2. DELTA-CORTEF [Suspect]
     Indication: RHINITIS
     Dosage: RESPIRATORY
     Route: 055
     Dates: start: 20040407, end: 20040101
  3. SUDAFED 12 HOUR [Suspect]
     Indication: RHINITIS
     Dosage: ORAL
     Route: 048
     Dates: start: 20040408, end: 20040101
  4. LANSOPRAZOLE [Suspect]
     Indication: PROPHYLAXIS
     Dosage: ORAL
     Route: 048
     Dates: start: 20040407, end: 20040101

REACTIONS (10)
  - ACUTE GENERALISED EXANTHEMATOUS PUSTULOSIS [None]
  - C-REACTIVE PROTEIN INCREASED [None]
  - EOSINOPHILIA [None]
  - ERYTHEMA [None]
  - INFLAMMATION [None]
  - LEUKOCYTOSIS [None]
  - MYELOCYTOSIS [None]
  - PYREXIA [None]
  - RED BLOOD CELL SEDIMENTATION RATE INCREASED [None]
  - SKIN DESQUAMATION [None]
